FAERS Safety Report 6913331-8 (Version None)
Quarter: 2010Q3

REPORT INFORMATION
  Report Type: 
  Country: None (occurrence: None)
  Receive Date: 20100809
  Receipt Date: 20100804
  Transmission Date: 20110219
  Serious: No
  Sender: FDA-Public Use
  Company Number: US-BAYER-201029518NA

PATIENT
  Age: 55 Year
  Sex: Male

DRUGS (1)
  1. LEVITRA [Suspect]
     Indication: ERECTILE DYSFUNCTION
     Dosage: UNIT DOSE: 20 MG
     Route: 048
     Dates: start: 20100801

REACTIONS (2)
  - EJACULATION DISORDER [None]
  - TESTICULAR PAIN [None]
